FAERS Safety Report 16079391 (Version 2)
Quarter: 2019Q2

REPORT INFORMATION
  Report Type: Report from Study
  Country: US (occurrence: US)
  Receive Date: 20190315
  Receipt Date: 20190404
  Transmission Date: 20190711
  Serious: Yes (Death, Hospitalization, Other)
  Sender: FDA-Public Use
  Company Number: US-REGENERON PHARMACEUTICALS, INC.-2019-19794

PATIENT

DRUGS (3)
  1. EYLEA [Suspect]
     Active Substance: AFLIBERCEPT
     Indication: NEOVASCULAR AGE-RELATED MACULAR DEGENERATION
     Dosage: 2 MG, EVERY 4 WEEKS INTO THE RIGHT EYE
     Route: 031
     Dates: end: 20181206
  2. EYLEA [Suspect]
     Active Substance: AFLIBERCEPT
     Indication: CHOROIDAL NEOVASCULARISATION
     Dosage: 2 MG, EVERY 4 WEEKS INTO THE RIGHT EYE
     Route: 031
     Dates: start: 20181004, end: 20181004
  3. EYLEA [Suspect]
     Active Substance: AFLIBERCEPT
     Dosage: 2 MG, EVERY 4 WEEKS INTO THE RIGHT EYE
     Route: 031
     Dates: start: 20181206, end: 20181206

REACTIONS (2)
  - Parkinson^s disease [Recovered/Resolved]
  - Death [Fatal]
